FAERS Safety Report 13898441 (Version 1)
Quarter: 2017Q3

REPORT INFORMATION
  Report Type: Spontaneous
  Country: US (occurrence: None)
  Receive Date: 20170823
  Receipt Date: 20170823
  Transmission Date: 20171127
  Serious: No
  Sender: FDA-Public Use
  Company Number: None

PATIENT
  Sex: Female

DRUGS (3)
  1. PROLIA [Suspect]
     Active Substance: DENOSUMAB
     Indication: OSTEOPOROSIS
     Dosage: 60MG Q6MO SUBQ
     Route: 058
  2. PROLIA [Suspect]
     Active Substance: DENOSUMAB
     Indication: BREAST CANCER
     Dosage: 60MG Q6MO SUBQ
     Route: 058
  3. PROLIA [Suspect]
     Active Substance: DENOSUMAB
     Indication: MENOPAUSAL DISORDER
     Dosage: 60MG Q6MO SUBQ
     Route: 058

REACTIONS (3)
  - Arthralgia [None]
  - Myalgia [None]
  - Muscle spasms [None]
